FAERS Safety Report 5262805-7 (Version None)
Quarter: 2007Q1

REPORT INFORMATION
  Report Type: 
  Country: None (occurrence: None)
  Receive Date: 20070312
  Receipt Date: 20070306
  Transmission Date: 20070707
  Serious: Yes (Other)
  Sender: FDA-Public Use
  Company Number: JP-JPN-A200700860

PATIENT

DRUGS (1)
  1. RELENZA [Suspect]
     Route: 055

REACTIONS (2)
  - DELIRIUM [None]
  - PYREXIA [None]
